FAERS Safety Report 12894856 (Version 2)
Quarter: 2017Q1

REPORT INFORMATION
  Report Type: Spontaneous
  Country: RU (occurrence: RU)
  Receive Date: 20161028
  Receipt Date: 20170216
  Transmission Date: 20170428
  Serious: Yes (Life-Threatening, Hospitalization)
  Sender: FDA-Public Use
  Company Number: RU-ASTRAZENECA-2016SF11562

PATIENT
  Age: 69 Year
  Sex: Female
  Weight: 60 kg

DRUGS (7)
  1. LANTUS [Concomitant]
     Active Substance: INSULIN GLARGINE
     Dosage: DAILY
  2. ATORVASTATIN [Concomitant]
     Active Substance: ATORVASTATIN
  3. CONCOR [Concomitant]
     Active Substance: BISOPROLOL FUMARATE
  4. BRILINTA [Suspect]
     Active Substance: TICAGRELOR
     Indication: CORONARY ARTERY BYPASS
     Route: 048
  5. XARELTO [Concomitant]
     Active Substance: RIVAROXABAN
     Dosage: 2,5 MG
  6. VALS [Concomitant]
     Dosage: 80 MG
  7. ESCORTI COR [Concomitant]

REACTIONS (9)
  - Radiculopathy [Unknown]
  - Chest pain [Not Recovered/Not Resolved]
  - Pulse abnormal [Unknown]
  - Myocardial infarction [Recovered/Resolved]
  - Pain [Unknown]
  - Dyspnoea [Not Recovered/Not Resolved]
  - Cough [Not Recovered/Not Resolved]
  - Off label use [Unknown]
  - Product use issue [Unknown]

NARRATIVE: CASE EVENT DATE: 201603
